FAERS Safety Report 5642113-2 (Version None)
Quarter: 2008Q1

REPORT INFORMATION
  Report Type: 
  Country: None (occurrence: None)
  Receive Date: 20080227
  Receipt Date: 20080218
  Transmission Date: 20080703
  Serious: Yes (Hospitalization)
  Sender: FDA-Public Use
  Company Number: JP-MERCK-0802USA05484

PATIENT
  Age: 76 Year
  Sex: Male

DRUGS (4)
  1. ZETIA [Suspect]
     Indication: HYPERCHOLESTEROLAEMIA
     Route: 048
     Dates: start: 20070612
  2. ASPIRIN [Concomitant]
     Route: 065
     Dates: start: 20060720
  3. WARFARIN SODIUM [Concomitant]
     Route: 065
     Dates: start: 20060720
  4. HYZAAR [Concomitant]
     Route: 065
     Dates: start: 20061226

REACTIONS (1)
  - MYOCARDIAL INFARCTION [None]
